FAERS Safety Report 6927324 (Version 8)
Quarter: 2020Q2

REPORT INFORMATION
  Report Type: Report from Study
  Country: FR (occurrence: FR)
  Receive Date: 20090304
  Receipt Date: 20200407
  Transmission Date: 20200714
  Serious: Yes (Death, Congenital Anomaly, Other)
  Sender: FDA-Public Use
  Company Number: FR-GILEAD-2009-0020445

PATIENT
  Sex: Female
  Weight: 1.19 kg

DRUGS (9)
  1. KALETRA [Suspect]
     Active Substance: LOPINAVIR\RITONAVIR
     Indication: HIV INFECTION
     Dosage: UNK
     Route: 064
     Dates: start: 20050908
  2. EMTRICITABINE [Suspect]
     Active Substance: EMTRICITABINE
     Indication: HIV INFECTION
     Dosage: 200 MG, QD
     Route: 064
     Dates: start: 20050523, end: 20060216
  3. VIDEX [Suspect]
     Active Substance: DIDANOSINE
     Indication: HIV INFECTION
     Dosage: UNK
     Route: 064
     Dates: start: 20050523, end: 20050908
  4. SUSTIVA [Suspect]
     Active Substance: EFAVIRENZ
     Indication: HIV INFECTION
     Dosage: 600 MG, QD
     Route: 064
     Dates: start: 20050523, end: 20050908
  5. VIRAMUNE [Suspect]
     Active Substance: NEVIRAPINE
     Indication: HIV INFECTION
     Dosage: 400 MG, QD
     Route: 064
     Dates: start: 20050704
  6. COMBIVIR [Suspect]
     Active Substance: LAMIVUDINE\ZIDOVUDINE
     Indication: HIV INFECTION
     Dosage: 200 MG, QD
     Route: 064
     Dates: start: 20050908
  7. VIRAMUNE [Suspect]
     Active Substance: NEVIRAPINE
     Dosage: 400 MG, QD
     Route: 064
     Dates: start: 20050620
  8. COMBIVIR [Suspect]
     Active Substance: LAMIVUDINE\ZIDOVUDINE
     Indication: MATERNAL EXPOSURE TIMING UNSPECIFIED
  9. NEVIRAPINE. [Suspect]
     Active Substance: NEVIRAPINE
     Indication: MATERNAL EXPOSURE TIMING UNSPECIFIED
     Route: 064

REACTIONS (11)
  - Encephalocele [Fatal]
  - Spina bifida [Fatal]
  - Neural tube defect [Fatal]
  - Foetal malformation [Not Recovered/Not Resolved]
  - Anencephaly [Fatal]
  - Meningomyelocele [Fatal]
  - Spinocerebellar disorder [Fatal]
  - Arnold-Chiari malformation [Not Recovered/Not Resolved]
  - Congenital hydrocephalus [Fatal]
  - Foetal exposure during pregnancy [Recovered/Resolved]
  - Brain herniation [Fatal]

NARRATIVE: CASE EVENT DATE: 20050813
